FAERS Safety Report 17391087 (Version 1)
Quarter: 2020Q1

REPORT INFORMATION
  Report Type: Spontaneous
  Country: US (occurrence: US)
  Receive Date: 20200207
  Receipt Date: 20200207
  Transmission Date: 20200409
  Serious: Yes (Hospitalization)
  Sender: FDA-Public Use
  Company Number: US-EYEPOINT PHARMACEUTICALS, INC.-US-EYP-20-00007

PATIENT

DRUGS (1)
  1. DEXYCU [Suspect]
     Active Substance: DEXAMETHASONE
     Indication: POST PROCEDURAL INFLAMMATION
     Route: 031
     Dates: start: 20200114, end: 20200114

REACTIONS (2)
  - Eye operation [Unknown]
  - Endophthalmitis [Unknown]

NARRATIVE: CASE EVENT DATE: 20200120
